FAERS Safety Report 9678143 (Version 1)
Quarter: 2013Q4

REPORT INFORMATION
  Report Type: Spontaneous
  Country: US (occurrence: US)
  Receive Date: 20131108
  Receipt Date: 20131108
  Transmission Date: 20140711
  Serious: No
  Sender: FDA-Public Use
  Company Number: US-UPSHER-SMITH LABORATORIES, INC.-13000103

PATIENT
  Age: 85 Year
  Sex: Female

DRUGS (14)
  1. JANTOVEN [Suspect]
     Indication: ATRIAL FIBRILLATION
     Dosage: 5 MG, QD
     Route: 048
     Dates: start: 201301, end: 201301
  2. LACTULOSE [Concomitant]
     Dosage: UNK
  3. IRON DEXTRAN INJECTION [Concomitant]
     Dosage: UNK
  4. MULTIVITAMIN                       /01229101/ [Concomitant]
     Dosage: UNK
  5. CITRACAL + D [Concomitant]
     Dosage: UNK
  6. MAGNESIUM OXIDE [Concomitant]
     Dosage: UNK
  7. PRESERVISION LUTEIN EYE VITA.+MIN.SUP.SOFTG. [Concomitant]
     Dosage: UNK
  8. ASMANEX [Concomitant]
     Dosage: UNK
  9. LASIX                              /00032601/ [Concomitant]
     Dosage: UNK
  10. METOPROLOL [Concomitant]
     Dosage: UNK
  11. VITAMIN D                          /00107901/ [Concomitant]
     Dosage: UNK
  12. ACTONEL [Concomitant]
     Dosage: UNK
  13. SYNTHROID [Concomitant]
     Dosage: UNK
  14. BABY ASPIRIN [Concomitant]
     Dosage: UNK

REACTIONS (5)
  - Skin exfoliation [Not Recovered/Not Resolved]
  - Pain of skin [Recovering/Resolving]
  - Skin warm [Recovered/Resolved]
  - Dry skin [Not Recovered/Not Resolved]
  - Erythema [Recovering/Resolving]
